FAERS Safety Report 9650948 (Version 1)
Quarter: 2013Q4

REPORT INFORMATION
  Report Type: Spontaneous
  Country: US (occurrence: US)
  Receive Date: 20131029
  Receipt Date: 20131029
  Transmission Date: 20140711
  Serious: No
  Sender: FDA-Public Use
  Company Number: US-PFIZER INC-2013303186

PATIENT
  Age: 64 Year
  Sex: Female
  Weight: 88.89 kg

DRUGS (2)
  1. GEODON [Suspect]
     Indication: BIPOLAR I DISORDER
     Dosage: UNK
     Dates: end: 2013
  2. GEODON [Suspect]
     Indication: BIPOLAR DISORDER

REACTIONS (1)
  - Metabolic disorder [Unknown]
